FAERS Safety Report 5604795-0 (Version None)
Quarter: 2008Q1

REPORT INFORMATION
  Report Type: 
  Country: None (occurrence: None)
  Receive Date: 20080128
  Receipt Date: 20080114
  Transmission Date: 20080703
  Serious: Yes (Death, Other)
  Sender: FDA-Public Use
  Company Number: US-ROCHE-541432

PATIENT
  Age: 52 Year
  Sex: Male

DRUGS (4)
  1. CAPECITABINE [Suspect]
     Indication: RECTAL CANCER
     Route: 065
  2. CAPECITABINE [Suspect]
     Dosage: POTENTIAL DEATH ONLY
     Route: 065
  3. FLUOROURACIL [Suspect]
     Indication: RECTAL CANCER
     Route: 065
  4. LEUCOVORIN CALCIUM [Suspect]
     Indication: RECTAL CANCER
     Route: 065

REACTIONS (3)
  - DRUG TOXICITY [None]
  - MUCOSAL INFLAMMATION [None]
  - RASH [None]
